FAERS Safety Report 8354023-0 (Version None)
Quarter: 2012Q2

REPORT INFORMATION
  Report Type: 
  Country: None (occurrence: None)
  Receive Date: 20120511
  Receipt Date: 20120504
  Transmission Date: 20120825
  Serious: Yes (Hospitalization, Disabling, Other)
  Sender: FDA-Public Use
  Company Number: US-BAYER-2011-082423

PATIENT
  Age: 32 Year
  Sex: Female
  Weight: 103 kg

DRUGS (19)
  1. ZITHROMAX [Concomitant]
     Dosage: UNK
     Dates: start: 20030801
  2. ATENOLOL [Concomitant]
     Indication: BLOOD PRESSURE ABNORMAL
     Dosage: UNK UNK, QD
     Dates: start: 20010101, end: 20040101
  3. PREDNISONE [Concomitant]
     Dosage: 10 MG, QD
     Route: 048
     Dates: start: 20030826
  4. RHINOCORT [Concomitant]
     Dosage: UNK
     Dates: start: 20020101, end: 20040101
  5. PREVACID [Concomitant]
     Indication: GASTROOESOPHAGEAL REFLUX DISEASE
     Dosage: UNK UNK, QD
     Dates: start: 20030924
  6. NYSTATIN [Concomitant]
     Dosage: 100000 U/ML, UNK
     Route: 048
     Dates: start: 20030805
  7. FLOVENT [Concomitant]
     Dosage: 2 PUFF(S), BID
     Dates: start: 20030818
  8. YASMIN [Suspect]
     Indication: CONTRACEPTION
     Dosage: UNK
     Dates: start: 20020725, end: 20040113
  9. HYDROCHLOROTHIAZIDE [Concomitant]
     Indication: FLUID RETENTION
     Dosage: UNK
     Dates: start: 20010101, end: 20040101
  10. HYDROCODONE BITARTRATE [Concomitant]
     Dosage: UNK
     Dates: start: 20020615, end: 20100515
  11. ALBUTEROL [Concomitant]
     Dosage: 90 MCG EVERY 6 HOURS
     Dates: start: 20020920, end: 20080101
  12. IBUATROPIUM BROMIDE [Concomitant]
     Dosage: EVERY 6 HOURS
     Dates: start: 20030801
  13. CLONIDINE [Concomitant]
     Indication: GASTROOESOPHAGEAL REFLUX DISEASE
     Dosage: UNK UNK, QD
     Dates: start: 20031002
  14. ASPIRIN [Concomitant]
     Dosage: UNK
     Dates: start: 20010101, end: 20040101
  15. OXYCODONE HCL AND ACETAMINOPHEN [Concomitant]
     Indication: PAIN
     Dosage: 5/325MG EVERY 4-6 HOURS
     Route: 048
     Dates: start: 20030801
  16. POTASSIUM CHLORIDE [Concomitant]
     Indication: MINERAL SUPPLEMENTATION
     Dosage: 10 MEQ, QD
     Route: 048
     Dates: start: 20030801, end: 20110101
  17. TORECAN [Concomitant]
     Indication: PAIN
     Dosage: 10 MG, EVERY 6-8 HOURS
     Dates: start: 20030801, end: 20030825
  18. PERCOCET [Concomitant]
     Dosage: 2.5/325, EVERY 6-8 HOURS
     Route: 048
     Dates: start: 20030903
  19. TRAMADOL HYDROCHLORIDE [Concomitant]
     Indication: PAIN
     Dosage: 50 MG, EVERY 4-6 HOURS
     Route: 048
     Dates: start: 20011119, end: 20030922

REACTIONS (20)
  - CHEST PAIN [None]
  - FATIGUE [None]
  - INSOMNIA [None]
  - GENERAL PHYSICAL HEALTH DETERIORATION [None]
  - DYSPNOEA [None]
  - LUNG DISORDER [None]
  - DEPRESSION [None]
  - PULMONARY EMBOLISM [None]
  - INJURY [None]
  - PAIN [None]
  - ASTHENIA [None]
  - ANGINA PECTORIS [None]
  - PARAESTHESIA [None]
  - EMOTIONAL DISTRESS [None]
  - SPEECH DISORDER [None]
  - HYPOAESTHESIA [None]
  - ANXIETY [None]
  - EXTRASYSTOLES [None]
  - MUSCLE SPASMS [None]
  - VOMITING [None]
